FAERS Safety Report 6412551-9 (Version None)
Quarter: 2009Q4

REPORT INFORMATION
  Report Type: 
  Country: None (occurrence: None)
  Receive Date: 20091023
  Receipt Date: 20091013
  Transmission Date: 20100525
  Serious: Yes (Hospitalization)
  Sender: FDA-Public Use
  Company Number: US-ABBOTT-09P-163-0602546-00

PATIENT
  Sex: Male
  Weight: 70.37 kg

DRUGS (4)
  1. HUMIRA [Suspect]
     Indication: CROHN'S DISEASE
     Route: 058
     Dates: start: 20070101
  2. HUMIRA [Suspect]
     Route: 058
  3. HUMIRA [Suspect]
  4. TYLENOL W/ CODEINE NO. 3 [Suspect]
     Indication: POSTOPERATIVE ANALGESIA
     Dates: start: 20090211

REACTIONS (7)
  - CROHN'S DISEASE [None]
  - DIZZINESS [None]
  - FISTULA [None]
  - IMPAIRED GASTRIC EMPTYING [None]
  - PYODERMA GANGRENOSUM [None]
  - SUBCUTANEOUS ABSCESS [None]
  - VOMITING [None]
